FAERS Safety Report 6584538-7 (Version None)
Quarter: 2010Q1

REPORT INFORMATION
  Report Type: 
  Country: None (occurrence: None)
  Receive Date: 20100217
  Receipt Date: 20100205
  Transmission Date: 20100710
  Serious: Yes (Other)
  Sender: FDA-Public Use
  Company Number: GB-RANBAXY-2010RR-30985

PATIENT
  Age: 44 Year

DRUGS (1)
  1. FLUCONAZOLE [Suspect]
     Indication: MENINGITIS CRYPTOCOCCAL
     Dosage: 600 MG, QD

REACTIONS (6)
  - HEADACHE [None]
  - MALAISE [None]
  - MENINGITIS CRYPTOCOCCAL [None]
  - NECK PAIN [None]
  - PHOTOPHOBIA [None]
  - TREATMENT FAILURE [None]
